FAERS Safety Report 24933510 (Version 2)
Quarter: 2025Q1

REPORT INFORMATION
  Report Type: Spontaneous
  Country: US (occurrence: US)
  Receive Date: 20250206
  Receipt Date: 20250217
  Transmission Date: 20250408
  Serious: Yes (Death, Other)
  Sender: MITSUBISHI TANABE PHARMA
  Company Number: US-MTPC-MTPA2025-0002039

PATIENT
  Age: 52 Year
  Sex: Female

DRUGS (10)
  1. RADICAVA ORS [Suspect]
     Active Substance: EDARAVONE
     Indication: Amyotrophic lateral sclerosis
     Dosage: 5 MILLILITER, QD FOR 14 DAYS THE DAILY DOSING FOR 10 DAYS OUT OF 14-DAY PERIODS FOLLOWED BY 14-DAY D
     Route: 048
     Dates: start: 202210
  2. RADICAVA ORS [Suspect]
     Active Substance: EDARAVONE
     Indication: Amyotrophic lateral sclerosis
     Dosage: 5 MILLILITER, QD FOR 14 DAYS THE DAILY DOSING FOR 10 DAYS OUT OF 14-DAY PERIODS FOLLOWED BY 14-DAY D
     Route: 048
     Dates: start: 202210
  3. AMITRIPTYLINE [Concomitant]
     Active Substance: AMITRIPTYLINE
     Indication: Product used for unknown indication
     Route: 065
  4. ATROPINE [Concomitant]
     Active Substance: ATROPINE
     Indication: Product used for unknown indication
     Route: 065
  5. CETIRIZINE [Concomitant]
     Active Substance: CETIRIZINE HYDROCHLORIDE
     Indication: Product used for unknown indication
     Route: 065
  6. LORATADINE [Concomitant]
     Active Substance: LORATADINE
     Indication: Product used for unknown indication
     Route: 065
  7. NUEDEXTA [Concomitant]
     Active Substance: DEXTROMETHORPHAN HYDROBROMIDE\QUINIDINE SULFATE
     Indication: Product used for unknown indication
     Route: 065
  8. RECLAST [Concomitant]
     Active Substance: ZOLEDRONIC ACID
     Indication: Product used for unknown indication
     Route: 065
  9. RILUZOLE [Concomitant]
     Active Substance: RILUZOLE
     Indication: Product used for unknown indication
     Route: 065
  10. SCOPOLAMINE [Concomitant]
     Active Substance: SCOPOLAMINE
     Indication: Product used for unknown indication
     Route: 065

REACTIONS (2)
  - Respiratory failure [Fatal]
  - Disease complication [Fatal]

NARRATIVE: CASE EVENT DATE: 20240816
